FAERS Safety Report 13582022 (Version 3)
Quarter: 2017Q2

REPORT INFORMATION
  Report Type: Report from Study
  Country: AR (occurrence: AR)
  Receive Date: 20170525
  Receipt Date: 20170615
  Transmission Date: 20170830
  Serious: Yes (Other)
  Sender: FDA-Public Use
  Company Number: PHHY2017AR073098

PATIENT
  Age: 65 Year
  Sex: Female

DRUGS (3)
  1. MOSAPRIDE [Concomitant]
     Active Substance: MOSAPRIDE
     Indication: PROPHYLAXIS
     Route: 065
  2. PANTOPRAZOLE [Concomitant]
     Active Substance: PANTOPRAZOLE
     Indication: PROPHYLAXIS
     Route: 065
  3. COSENTYX [Suspect]
     Active Substance: SECUKINUMAB
     Indication: PSORIATIC ARTHROPATHY
     Dosage: 150 MG, QW
     Route: 065
     Dates: start: 20170508, end: 20170508

REACTIONS (8)
  - Chest discomfort [Not Recovered/Not Resolved]
  - Pneumonia [Recovering/Resolving]
  - Headache [Recovering/Resolving]
  - Wrong device dispensed [Unknown]
  - Malaise [Recovering/Resolving]
  - Vomiting [Recovering/Resolving]
  - Abdominal discomfort [Not Recovered/Not Resolved]
  - Nausea [Not Recovered/Not Resolved]

NARRATIVE: CASE EVENT DATE: 20170509
